FAERS Safety Report 11105614 (Version 1)
Quarter: 2015Q2

REPORT INFORMATION
  Report Type: Spontaneous
  Country: US (occurrence: None)
  Receive Date: 20150508
  Receipt Date: 20150508
  Transmission Date: 20150821
  Serious: Yes (Life-Threatening, Hospitalization, Disabling)
  Sender: FDA-Public Use
  Company Number: None

PATIENT
  Age: 72 Year
  Sex: Male
  Weight: 63.5 kg

DRUGS (15)
  1. LIPITOR [Concomitant]
     Active Substance: ATORVASTATIN CALCIUM
  2. LATUDA [Suspect]
     Active Substance: LURASIDONE HYDROCHLORIDE
     Indication: DEPRESSION
     Dosage: 1 TABLET
     Route: 048
     Dates: start: 20150330, end: 20150417
  3. SPIRIVA [Concomitant]
     Active Substance: TIOTROPIUM BROMIDE MONOHYDRATE
  4. LORAZEPAM. [Concomitant]
     Active Substance: LORAZEPAM
  5. CALCITRATE [Concomitant]
     Active Substance: CALCIUM CITRATE
  6. MULTI VITAMIN [Concomitant]
     Active Substance: VITAMINS
  7. PROZAC [Concomitant]
     Active Substance: FLUOXETINE HYDROCHLORIDE
  8. NEURONTIN [Concomitant]
     Active Substance: GABAPENTIN
  9. ADVAIR HFA [Concomitant]
     Active Substance: FLUTICASONE PROPIONATE\SALMETEROL XINAFOATE
  10. WARFARIN [Concomitant]
     Active Substance: WARFARIN
  11. LAMICTAL [Concomitant]
     Active Substance: LAMOTRIGINE
  12. CPAP CONNECTED TO OXYGEN [Concomitant]
  13. METOPROLOL [Concomitant]
     Active Substance: METOPROLOL
  14. LASIX [Concomitant]
     Active Substance: FUROSEMIDE
  15. ZYPREXA [Concomitant]
     Active Substance: OLANZAPINE

REACTIONS (19)
  - Delusion [None]
  - Activities of daily living impaired [None]
  - Dementia [None]
  - Dysstasia [None]
  - Posture abnormal [None]
  - Bladder dilatation [None]
  - Agitation [None]
  - Dizziness [None]
  - Fall [None]
  - Abasia [None]
  - Back pain [None]
  - Dysphagia [None]
  - Speech disorder [None]
  - Impaired driving ability [None]
  - Tremor [None]
  - Eye haemorrhage [None]
  - Swelling [None]
  - Fatigue [None]
  - Prostatic disorder [None]

NARRATIVE: CASE EVENT DATE: 20150425
